FAERS Safety Report 10160756 (Version 2)
Quarter: 2014Q2

REPORT INFORMATION
  Report Type: Report from Study
  Country: US (occurrence: US)
  Receive Date: 20140508
  Receipt Date: 20140515
  Transmission Date: 20141212
  Serious: Yes (Hospitalization)
  Sender: FDA-Public Use
  Company Number: US-BRISTOL-MYERS SQUIBB COMPANY-20690749

PATIENT
  Age: 44 Year
  Sex: Female
  Weight: 89.7 kg

DRUGS (16)
  1. NIVOLUMAB [Suspect]
     Indication: GLIOBLASTOMA MULTIFORME
     Dosage: LAST DOSE:02APR14
     Route: 042
     Dates: start: 20140212
  2. IPILIMUMAB [Suspect]
     Indication: GLIOBLASTOMA MULTIFORME
     Dosage: LAST DOSE:02APR14
     Route: 042
     Dates: start: 20140212
  3. KEPPRA [Concomitant]
  4. MEDROL [Concomitant]
     Dosage: 4MG?16/DAY
     Route: 048
     Dates: start: 20140402
  5. DIAZEPAM [Concomitant]
     Dates: start: 20130607
  6. PRILOSEC [Concomitant]
     Route: 048
     Dates: start: 20130607
  7. DOCUSATE [Concomitant]
     Dates: start: 20130625
  8. ACETAMINOPHEN [Concomitant]
     Dates: start: 20131028
  9. LORAZEPAM [Concomitant]
     Dates: start: 20131028
  10. ZONISAMIDE [Concomitant]
     Dates: start: 20131028
  11. HYDROCORTISONE [Concomitant]
     Route: 061
     Dates: start: 20140222
  12. NORCO [Concomitant]
     Indication: PAIN
     Dosage: 1 DF: 1 TAB BY MOUTH EVERY 6HRS PRN?5-325MG
     Route: 048
  13. INSULIN REGULAR [Concomitant]
     Route: 058
  14. XANAX [Concomitant]
     Indication: ANXIETY
     Dosage: DOSAGE:EVERY 6HRS PRN
     Route: 048
  15. DIABETA [Concomitant]
     Route: 048
  16. COUMADIN [Concomitant]

REACTIONS (3)
  - Diabetic ketoacidosis [Recovered/Resolved]
  - Pancreatitis [Recovering/Resolving]
  - Hyperglycaemia [Recovered/Resolved]
